FAERS Safety Report 7699536-X (Version None)
Quarter: 2011Q3

REPORT INFORMATION
  Report Type: 
  Country: None (occurrence: None)
  Receive Date: 20110821
  Receipt Date: 20110816
  Transmission Date: 20111222
  Serious: Yes (Other)
  Sender: FDA-Public Use
  Company Number: US-AMGEN-USASP2011036200

PATIENT
  Age: 61 Year
  Sex: Male

DRUGS (3)
  1. NPLATE [Suspect]
     Indication: IDIOPATHIC THROMBOCYTOPENIC PURPURA
     Dosage: 10 A?G, QWK
  2. PREDNISONE [Concomitant]
     Dosage: UNK UNK, QD
  3. PREDNISONE [Concomitant]

REACTIONS (5)
  - HAEMATOLOGICAL MALIGNANCY [None]
  - ERYTHROBLAST COUNT INCREASED [None]
  - MYELODYSPLASTIC SYNDROME [None]
  - BIOPSY BONE MARROW ABNORMAL [None]
  - DRUG INEFFECTIVE [None]
